FAERS Safety Report 18112667 (Version 1)
Quarter: 2020Q3

REPORT INFORMATION
  Report Type: Spontaneous
  Country: IT (occurrence: IT)
  Receive Date: 20200805
  Receipt Date: 20200805
  Transmission Date: 20201103
  Serious: Yes (Hospitalization)
  Sender: FDA-Public Use
  Company Number: NVSC2020IT217104

PATIENT
  Age: 67 Year
  Sex: Male
  Weight: 82 kg

DRUGS (1)
  1. SECUKINUMAB. [Suspect]
     Active Substance: SECUKINUMAB
     Indication: PSORIASIS
     Dosage: 300 MG
     Route: 058
     Dates: start: 20200219, end: 20200318

REACTIONS (1)
  - Prostate cancer [Unknown]
